FAERS Safety Report 12407257 (Version 1)
Quarter: 2016Q2

REPORT INFORMATION
  Report Type: Spontaneous
  Country: US (occurrence: US)
  Receive Date: 20160526
  Receipt Date: 20160526
  Transmission Date: 20160815
  Serious: No
  Sender: FDA-Public Use
  Company Number: US-SIGMAPHARM LABORATORIES, LLC-2016SIG00018

PATIENT
  Sex: Male
  Weight: 106.58 kg

DRUGS (2)
  1. DISULFIRAM. [Suspect]
     Active Substance: DISULFIRAM
     Dosage: 0.5 TABLETS, UNK
     Dates: start: 201603
  2. DISULFIRAM. [Suspect]
     Active Substance: DISULFIRAM
     Indication: ALCOHOL INTERACTION
     Dosage: 0.5 TABLETS, ONCE
     Route: 048
     Dates: start: 201603, end: 201603

REACTIONS (1)
  - Nausea [Recovered/Resolved]
